FAERS Safety Report 13937887 (Version 2)
Quarter: 2017Q4

REPORT INFORMATION
  Report Type: Spontaneous
  Country: RS (occurrence: RS)
  Receive Date: 20170905
  Receipt Date: 20171019
  Transmission Date: 20180320
  Serious: Yes (Other)
  Sender: FDA-Public Use
  Company Number: RS-MYLANLABS-2017M1053648

PATIENT
  Age: 51 Year
  Sex: Female

DRUGS (7)
  1. LIZOPRIL [Concomitant]
     Active Substance: LISINOPRIL
     Indication: HYPERTENSION
     Dosage: 1 DF, QD
     Route: 048
  2. MONODIPIN [Concomitant]
     Indication: PRODUCT USED FOR UNKNOWN INDICATION
     Dosage: 1 DF, QD
     Route: 048
  3. ROXERA [Concomitant]
     Indication: HYPERLIPIDAEMIA
     Dosage: 1 DF, QD
     Route: 048
  4. LIPANTHYL 145 [Suspect]
     Active Substance: FENOFIBRATE
     Indication: HYPERLIPIDAEMIA
     Dosage: 1 DF, QD
     Route: 048
     Dates: start: 20170411, end: 20170628
  5. LIPANTHYL 145 [Suspect]
     Active Substance: FENOFIBRATE
     Indication: HYPERTRIGLYCERIDAEMIA
  6. ROXERA [Concomitant]
     Dosage: 2 DF, QD
     Route: 048
  7. NEBILET [Concomitant]
     Active Substance: NEBIVOLOL
     Indication: PRODUCT USED FOR UNKNOWN INDICATION
     Dosage: 0.5 DF, QD
     Route: 048

REACTIONS (2)
  - Drug ineffective [Recovering/Resolving]
  - Product substitution issue [Recovering/Resolving]

NARRATIVE: CASE EVENT DATE: 20170411
